FAERS Safety Report 9324156 (Version 1)
Quarter: 2013Q2

REPORT INFORMATION
  Report Type: Spontaneous
  Country: US (occurrence: US)
  Receive Date: 20130603
  Receipt Date: 20130603
  Transmission Date: 20140414
  Serious: Yes (Death)
  Sender: FDA-Public Use
  Company Number: US-PFIZER INC-US-WYE-H07566809

PATIENT
  Age: 55 Year
  Sex: Female

DRUGS (4)
  1. VENLAFAXINE HCL [Suspect]
     Dosage: UNKNOWN
     Route: 048
     Dates: start: 2007, end: 2007
  2. ZOLPIDEM TARTRATE [Suspect]
     Dosage: UNKNOWN
     Route: 048
     Dates: start: 2007, end: 2007
  3. ETHANOL [Suspect]
     Dosage: UNK
     Route: 048
     Dates: start: 2007, end: 2007
  4. ACETAMINOPHEN [Suspect]
     Dosage: UNK
     Route: 048
     Dates: start: 2007, end: 2007

REACTIONS (6)
  - Completed suicide [Fatal]
  - Cardiac arrest [Fatal]
  - Convulsion [Fatal]
  - Hypotension [Fatal]
  - Vomiting [Fatal]
  - Loss of consciousness [Fatal]
